FAERS Safety Report 4482365-8 (Version None)
Quarter: 2004Q3

REPORT INFORMATION
  Report Type: 
  Country: None (occurrence: None)
  Receive Date: 20040921
  Receipt Date: 20040514
  Transmission Date: 20050211
  Serious: Yes (Hospitalization)
  Sender: FDA-Public Use
  Company Number: 163-20785-04050378

PATIENT
  Age: 67 Year
  Sex: Female
  Weight: 66.8 kg

DRUGS (2)
  1. THALOMID [Suspect]
     Indication: OVARIAN NEOPLASM
     Dosage: 400-1000 MG DAILY ORAL
     Route: 048
     Dates: start: 20040414, end: 20040512
  2. RADIATION [Suspect]
     Indication: OVARIAN NEOPLASM
     Dosage: 2.5 GY QD DAYS 105 WEEKLY FOR 3 WEEKS
     Dates: start: 20040414

REACTIONS (2)
  - OEDEMA PERIPHERAL [None]
  - SOMNOLENCE [None]
